FAERS Safety Report 10453445 (Version 1)
Quarter: 2014Q3

REPORT INFORMATION
  Report Type: Spontaneous
  Country: IN (occurrence: IN)
  Receive Date: 20140915
  Receipt Date: 20140915
  Transmission Date: 20150326
  Serious: Yes (Hospitalization)
  Sender: FDA-Public Use
  Company Number: IN-MYLAN-2014M1004491

PATIENT

DRUGS (6)
  1. CLONAZEPAM. [Suspect]
     Active Substance: CLONAZEPAM
     Indication: OVERDOSE
     Dosage: 20 CLONAZEPAM 0.25MG TABLETS
     Route: 048
  2. CLOZAPINE. [Suspect]
     Active Substance: CLOZAPINE
     Indication: OVERDOSE
     Dosage: 20 CLOZAPINE 100MG TABLETS
     Route: 048
  3. FOLIC ACID. [Suspect]
     Active Substance: FOLIC ACID
     Indication: OVERDOSE
     Dosage: 20 FOLIC ACID 5MG TABLETS
     Route: 048
  4. CLOZAPINE. [Suspect]
     Active Substance: CLOZAPINE
     Indication: OFF LABEL USE
  5. CLONAZEPAM. [Suspect]
     Active Substance: CLONAZEPAM
     Indication: OFF LABEL USE
  6. FOLIC ACID. [Suspect]
     Active Substance: FOLIC ACID
     Indication: OFF LABEL USE

REACTIONS (12)
  - Suicide attempt [Recovered/Resolved]
  - Electrocardiogram abnormal [Recovered/Resolved]
  - Delirium [None]
  - Somnolence [None]
  - Toxicity to various agents [Recovered/Resolved]
  - Mood altered [None]
  - Coma [Recovered/Resolved]
  - Tachycardia [Recovered/Resolved]
  - Respiratory depression [Recovered/Resolved]
  - Respiratory failure [None]
  - Overdose [Recovered/Resolved]
  - Disorientation [None]
